FAERS Safety Report 5785022-0 (Version None)
Quarter: 2008Q2

REPORT INFORMATION
  Report Type: 
  Country: None (occurrence: None)
  Receive Date: 20080605
  Receipt Date: 20080418
  Transmission Date: 20081010
  Serious: No
  Sender: FDA-Public Use
  Company Number: A0723578A

PATIENT
  Age: 36 Year
  Sex: Female
  Weight: 112 kg

DRUGS (2)
  1. ALLI [Suspect]
     Dates: start: 20080407
  2. MULTI-VITAMIN [Concomitant]

REACTIONS (5)
  - CONSTIPATION [None]
  - DIARRHOEA [None]
  - FREQUENT BOWEL MOVEMENTS [None]
  - INFREQUENT BOWEL MOVEMENTS [None]
  - STEATORRHOEA [None]
